FAERS Safety Report 9626154 (Version 2)
Quarter: 2014Q1

REPORT INFORMATION
  Report Type: Spontaneous
  Country: IT (occurrence: IT)
  Receive Date: 20131016
  Receipt Date: 20140213
  Transmission Date: 20141002
  Serious: Yes (Hospitalization)
  Sender: FDA-Public Use
  Company Number: IT-ELI_LILLY_AND_COMPANY-IT201310002678

PATIENT
  Age: 42 Year
  Sex: Male
  Weight: 99 kg

DRUGS (4)
  1. CYMBALTA [Suspect]
     Indication: MAJOR DEPRESSION
     Dosage: 60 MG, QD
     Route: 048
     Dates: start: 2009
  2. CYMBALTA [Interacting]
     Dosage: 30 MG, UNKNOWN
     Route: 065
     Dates: start: 201309, end: 201312
  3. ALCOHOL [Interacting]
     Indication: PRODUCT USED FOR UNKNOWN INDICATION
  4. XANAX [Concomitant]
     Indication: PRODUCT USED FOR UNKNOWN INDICATION
     Dosage: 1 DF, UNKNOWN
     Route: 065

REACTIONS (8)
  - Aggression [Recovered/Resolved]
  - Psychomotor hyperactivity [Recovered/Resolved]
  - Aggression [Recovered/Resolved]
  - Altered state of consciousness [Not Recovered/Not Resolved]
  - Alcohol poisoning [Recovered/Resolved]
  - Drug interaction [Recovered/Resolved]
  - Hypercholesterolaemia [Unknown]
  - Hypertransaminasaemia [Unknown]
